FAERS Safety Report 11545061 (Version 1)
Quarter: 2015Q3

REPORT INFORMATION
  Report Type: Spontaneous
  Country: US (occurrence: None)
  Receive Date: 20150923
  Receipt Date: 20150923
  Transmission Date: 20151125
  Serious: No
  Sender: FDA-Public Use
  Company Number: None

PATIENT
  Age: 61 Year
  Sex: Female

DRUGS (2)
  1. VELCADE [Suspect]
     Active Substance: BORTEZOMIB
     Indication: PLASMA CELL MYELOMA
     Dosage: 1 SHOT FOR 3 WEEKS; 3 WKS OFF -- SUBCUTANEOUS
     Route: 058
     Dates: start: 20100101, end: 20150922
  2. DEXAMETHASONE. [Concomitant]
     Active Substance: DEXAMETHASONE

REACTIONS (3)
  - Nausea [None]
  - Haemoglobin decreased [None]
  - Diarrhoea [None]

NARRATIVE: CASE EVENT DATE: 20150918
